FAERS Safety Report 7663793-6 (Version None)
Quarter: 2011Q3

REPORT INFORMATION
  Report Type: 
  Country: None (occurrence: None)
  Receive Date: 20110805
  Receipt Date: 20100803
  Transmission Date: 20111222
  Serious: No
  Sender: FDA-Public Use
  Company Number: US-ABBOTT-10P-163-0661331-00

PATIENT
  Sex: Female
  Weight: 86.26 kg

DRUGS (5)
  1. NIASPAN [Suspect]
     Indication: HYPERLIPIDAEMIA
     Dosage: AT BEDTIME
     Dates: start: 20100620
  2. M.V.I. [Concomitant]
     Indication: PRODUCT USED FOR UNKNOWN INDICATION
  3. CRESTOR [Concomitant]
     Indication: PRODUCT USED FOR UNKNOWN INDICATION
  4. ASPIRIN [Concomitant]
     Indication: PRODUCT USED FOR UNKNOWN INDICATION
  5. QUINAPRIL [Concomitant]
     Indication: PRODUCT USED FOR UNKNOWN INDICATION

REACTIONS (2)
  - FEELING ABNORMAL [None]
  - NOCTURIA [None]
